FAERS Safety Report 17088858 (Version 1)
Quarter: 2019Q4

REPORT INFORMATION
  Report Type: Spontaneous
  Country: US (occurrence: US)
  Receive Date: 20191128
  Receipt Date: 20191128
  Transmission Date: 20200122
  Serious: Yes (Other)
  Sender: FDA-Public Use
  Company Number: US-ROCHE-2227186

PATIENT
  Sex: Female

DRUGS (2)
  1. HERCEPTIN [Suspect]
     Active Substance: TRASTUZUMAB
     Indication: HER-2 POSITIVE BREAST CANCER
     Dosage: STANDARD DOSE ;ONGOING: NO
     Route: 042
     Dates: end: 201812
  2. PERJETA [Suspect]
     Active Substance: PERTUZUMAB
     Indication: HER-2 POSITIVE BREAST CANCER
     Dosage: STANDARD DOSE ;ONGOING: NO
     Route: 042
     Dates: end: 201812

REACTIONS (2)
  - Hypoaesthesia oral [Unknown]
  - Ejection fraction decreased [Not Recovered/Not Resolved]
